FAERS Safety Report 19042596 (Version 1)
Quarter: 2021Q1

REPORT INFORMATION
  Report Type: Spontaneous
  Country: US (occurrence: US)
  Receive Date: 20210322
  Receipt Date: 20210322
  Transmission Date: 20210420
  Serious: Yes (Other)
  Sender: FDA-Public Use
  Company Number: None

PATIENT
  Age: 53 Year
  Sex: Male
  Weight: 109.35 kg

DRUGS (1)
  1. TEMOZOLOMIDE CAPSULE [Suspect]
     Active Substance: TEMOZOLOMIDE
     Indication: BRAIN NEOPLASM MALIGNANT
     Dosage: OTHER FREQUENCY:DAILY FOR 5 DAYS;?
     Route: 048

REACTIONS (2)
  - Peripheral swelling [None]
  - Gait disturbance [None]

NARRATIVE: CASE EVENT DATE: 20210322
